FAERS Safety Report 4309094-5 (Version None)
Quarter: 2004Q1

REPORT INFORMATION
  Report Type: 
  Country: None (occurrence: None)
  Receive Date: 20040302
  Receipt Date: 20040224
  Transmission Date: 20041129
  Serious: Yes (Other)
  Sender: FDA-Public Use
  Company Number: CA-GLAXOSMITHKLINE-A0499895A

PATIENT
  Age: 38 Year
  Sex: Male

DRUGS (16)
  1. LAMICTAL [Suspect]
     Indication: DRUG USE FOR UNKNOWN INDICATION
     Dosage: 100MG TWICE PER DAY
     Route: 048
  2. CLOZARIL [Suspect]
     Indication: DRUG USE FOR UNKNOWN INDICATION
     Dosage: 25MG TWICE PER DAY
     Route: 065
  3. ACETAMINOPHEN [Concomitant]
  4. ATIVAN [Concomitant]
  5. BROMOCRIPTINE MESYLATE [Concomitant]
  6. CELEBREX [Concomitant]
  7. CLINDAMYCIN [Concomitant]
  8. FLOVENT [Concomitant]
  9. FUROSEMIDE [Concomitant]
  10. HALOPERIDOL [Concomitant]
  11. NICOTINE [Concomitant]
  12. PANTOLOC [Concomitant]
  13. SALBUTAMOL [Concomitant]
  14. CIPRO [Concomitant]
  15. IPRATROPIUM BROMIDE [Concomitant]
  16. RANITIDINE [Concomitant]

REACTIONS (9)
  - BLOOD CREATINE PHOSPHOKINASE INCREASED [None]
  - FALL [None]
  - HYPOVENTILATION [None]
  - NEUROLEPTIC MALIGNANT SYNDROME [None]
  - NEUTROPHILIA [None]
  - PLEURAL EFFUSION [None]
  - PNEUMONIA ASPIRATION [None]
  - RESPIRATORY ACIDOSIS [None]
  - THROMBOPHLEBITIS [None]
